FAERS Safety Report 9176107 (Version 2)
Quarter: 2012Q4

REPORT INFORMATION
  Report Type: 
  Country: US (occurrence: US)
  Receive Date: 20120918
  Receipt Date: 20121105
  Transmission Date: 20130627
  Serious: Yes (Other)
  Sender: FDA-Public Use
  Company Number: US-RB-044547-12

PATIENT
  Age: 0 None
  Sex: Female

DRUGS (8)
  1. SUBOXONE FILM [Suspect]
     Dosage: Suboxone film
     Route: 064
     Dates: start: 201108, end: 201110
  2. SUBOXONE FILM [Suspect]
     Indication: DRUG DEPENDENCE
     Dosage: Suboxone film
     Route: 063
     Dates: start: 201205, end: 201206
  3. SUBUTEX [Suspect]
     Route: 064
     Dates: start: 201110, end: 20120429
  4. SUBUTEX [Suspect]
     Indication: DRUG DEPENDENCE
     Route: 063
     Dates: start: 20120429, end: 201205
  5. CANNABIS SATIVA SUBSP. INDICA TOP [Suspect]
     Indication: PRODUCT USED FOR UNKNOWN INDICATION
     Dosage: Dosing details unknown
     Route: 064
     Dates: start: 201111, end: 201111
  6. CIGARETTES [Suspect]
     Dosage: 10 cigarettes daily
     Route: 064
     Dates: start: 201108, end: 20120429
  7. CIGARETTES [Suspect]
     Indication: NICOTINE DEPENDENCE
     Dosage: Mother smoked 10 daily
     Route: 063
     Dates: start: 20120429, end: 201206
  8. PRENATAL VITAMINS [Suspect]
     Indication: PREGNANCY
     Dosage: Dosing details unknown
     Route: 064
     Dates: start: 201110, end: 20120428

REACTIONS (3)
  - Foetal exposure during pregnancy [Recovered/Resolved]
  - Premature baby [Recovered/Resolved]
  - Exposure during breast feeding [Recovered/Resolved]
